FAERS Safety Report 9933044 (Version 1)
Quarter: 2014Q1

REPORT INFORMATION
  Report Type: Spontaneous
  Country: US (occurrence: None)
  Receive Date: 20140226
  Receipt Date: 20140226
  Transmission Date: 20141002
  Serious: Yes (Other)
  Sender: FDA-Public Use
  Company Number: 2014P1001334

PATIENT
  Age: 8 Year
  Sex: Male

DRUGS (3)
  1. CETIRIZINE [Suspect]
     Indication: URTICARIA
  2. FEXOFENADINE [Suspect]
     Indication: SEASONAL ALLERGY
  3. DIPHENHYDRAMINE [Suspect]
     Indication: URTICARIA

REACTIONS (1)
  - Urticaria [None]
